FAERS Safety Report 7905965-9 (Version None)
Quarter: 2011Q4

REPORT INFORMATION
  Report Type: 
  Country: None (occurrence: None)
  Receive Date: 20111110
  Receipt Date: 20111031
  Transmission Date: 20120403
  Serious: Yes (Other)
  Sender: FDA-Public Use
  Company Number: PHHY2011DK96401

PATIENT
  Sex: Female

DRUGS (6)
  1. KEFLEX [Suspect]
     Indication: ANTIBIOTIC THERAPY
     Dates: start: 20080501
  2. GENTAMICIN [Suspect]
     Indication: ANTIBIOTIC THERAPY
     Route: 065
     Dates: start: 20080501
  3. CLINDAMYCIN [Suspect]
     Indication: ANTIBIOTIC THERAPY
     Route: 065
     Dates: start: 20080501
  4. ZINACEF [Suspect]
     Indication: ANTIBIOTIC THERAPY
     Route: 042
     Dates: start: 20080101
  5. DICLOXACILLIN [Suspect]
     Indication: ANTIBIOTIC THERAPY
     Route: 065
     Dates: start: 20080101
  6. MEROPENEM [Suspect]
     Indication: ANTIBIOTIC THERAPY
     Dates: start: 20080501

REACTIONS (10)
  - SKIN DISCOLOURATION [None]
  - BLISTER [None]
  - GAIT DISTURBANCE [None]
  - BLOOD PRESSURE INCREASED [None]
  - STAPHYLOCOCCAL INFECTION [None]
  - LEUKOCYTOCLASTIC VASCULITIS [None]
  - VASCULITIS [None]
  - DRUG INEFFECTIVE [None]
  - ARTHROPATHY [None]
  - RASH [None]
